FAERS Safety Report 24434947 (Version 1)
Quarter: 2024Q4

REPORT INFORMATION
  Report Type: Spontaneous
  Country: US (occurrence: US)
  Receive Date: 20241014
  Receipt Date: 20241014
  Transmission Date: 20250115
  Serious: Yes (Hospitalization, Other)
  Sender: BRISTOL-MYERS SQUIBB COMPANY
  Company Number: US-BRISTOL-MYERS SQUIBB COMPANY-2024-161788

PATIENT
  Age: 76 Year
  Sex: Female
  Weight: 58.51 kg

DRUGS (14)
  1. ELIQUIS [Suspect]
     Active Substance: APIXABAN
     Indication: Cerebrovascular accident
     Route: 048
     Dates: start: 2016
  2. URSODIOL [Concomitant]
     Active Substance: URSODIOL
     Indication: Product used for unknown indication
  3. METOPROLOL [Concomitant]
     Active Substance: METOPROLOL
     Indication: Heart rate abnormal
     Dosage: (2) IN MORNING AND (2) AT NIGHT, (THE CONSUMER REPORTED THAT SHE SOMETIMES TAKES (3) AT NIGHT DEPEND
  4. CRESTOR [Concomitant]
     Active Substance: ROSUVASTATIN CALCIUM
     Indication: Product used for unknown indication
  5. EZETIMIBE [Concomitant]
     Active Substance: EZETIMIBE
     Indication: Product used for unknown indication
     Dosage: AT NIGHTY TIME
  6. ASPIRIN [Concomitant]
     Active Substance: ASPIRIN
     Indication: Product used for unknown indication
     Dosage: IN THE MORNING
  7. PRILOSEC [Concomitant]
     Active Substance: OMEPRAZOLE MAGNESIUM
     Indication: Product used for unknown indication
  8. MELATONIN [Concomitant]
     Active Substance: MELATONIN
     Indication: Sleep disorder
     Dosage: AT BEDTIME
  9. COLACE [Concomitant]
     Active Substance: DOCUSATE SODIUM
     Indication: Constipation prophylaxis
     Dosage: (2) AT NIGHT
  10. GAS-X [Concomitant]
     Active Substance: DIMETHICONE
     Indication: Product used for unknown indication
     Dosage: AS NEEDED AT NIGHT TIME
  11. TIME RELEASE VITAMIN C [Concomitant]
     Indication: Product used for unknown indication
  12. BIOTIN;CALCIUM PHOSPHATE [Concomitant]
     Indication: Product used for unknown indication
     Dosage: BIOTIN CALCIUM
  13. VITAMIN D3 [Concomitant]
     Active Substance: CHOLECALCIFEROL
     Indication: Product used for unknown indication
     Dosage: (2000IU)
  14. VITAMINS [Concomitant]
     Active Substance: VITAMINS
     Indication: Product used for unknown indication
     Dosage: FLINTSTONE SUPPORT CHEWABLE

REACTIONS (2)
  - Cardiac disorder [Unknown]
  - Dizziness [Unknown]

NARRATIVE: CASE EVENT DATE: 20220101
